FAERS Safety Report 12989871 (Version 2)
Quarter: 2017Q1

REPORT INFORMATION
  Report Type: Report from Study
  Country: CO (occurrence: CO)
  Receive Date: 20161201
  Receipt Date: 20170310
  Transmission Date: 20170428
  Serious: Yes (Other)
  Sender: FDA-Public Use
  Company Number: CO-ASTELLAS-2016US046920

PATIENT
  Age: 66 Year
  Sex: Male

DRUGS (1)
  1. TACROLIMUS. [Suspect]
     Active Substance: TACROLIMUS
     Indication: RENAL TRANSPLANT
     Route: 048
     Dates: start: 20130605, end: 201610

REACTIONS (2)
  - Kidney transplant rejection [Unknown]
  - Drug level changed [Recovered/Resolved]

NARRATIVE: CASE EVENT DATE: 201610
